FAERS Safety Report 9011970 (Version 1)
Quarter: 2012Q4

REPORT INFORMATION
  Report Type: Spontaneous
  Country: GB (occurrence: None)
  Receive Date: 20121228
  Receipt Date: 20121228
  Transmission Date: 20130627
  Serious: Yes (Hospitalization)
  Sender: FDA-Public Use
  Company Number: 1544247

PATIENT
  Age: 16 Year
  Sex: Male
  Weight: 26.31 kg

DRUGS (9)
  1. CEFTAZIDIME [Suspect]
     Indication: INFECTION PSEUDOMONAS AERUGINOSA
     Route: 042
     Dates: start: 20121126, end: 20121127
  2. TOBRAMYCIN [Concomitant]
  3. FLUCLOXACILLIN [Concomitant]
  4. COLOMYCIN /00013203/ [Concomitant]
  5. COLECALCIFEROL [Concomitant]
  6. DORNASE ALFA [Concomitant]
  7. AZITHYROMYCIN [Concomitant]
  8. LORATADINE [Concomitant]
  9. PREDNISOLONE [Concomitant]

REACTIONS (7)
  - Malaise [None]
  - Erythema [None]
  - Serum sickness [None]
  - Lip swelling [None]
  - Lip blister [None]
  - Pruritus [None]
  - Hypersensitivity [None]
